FAERS Safety Report 25301778 (Version 2)
Quarter: 2025Q2

REPORT INFORMATION
  Report Type: Spontaneous
  Country: FR (occurrence: FR)
  Receive Date: 20250512
  Receipt Date: 20250527
  Transmission Date: 20250717
  Serious: Yes (Other)
  Sender: ELI LILLY AND COMPANY
  Company Number: None

PATIENT
  Age: 53 Year
  Sex: Male

DRUGS (11)
  1. OLANZAPINE [Interacting]
     Active Substance: OLANZAPINE
     Indication: Product administration error
     Route: 048
     Dates: start: 20250404, end: 20250404
  2. FLUOXETINE HYDROCHLORIDE [Interacting]
     Active Substance: FLUOXETINE HYDROCHLORIDE
     Indication: Product administration error
     Route: 048
     Dates: start: 20250404, end: 20250404
  3. CLOBAZAM [Interacting]
     Active Substance: CLOBAZAM
     Indication: Product administration error
     Route: 048
     Dates: start: 20250404, end: 20250404
  4. VALPROMIDE [Interacting]
     Active Substance: VALPROMIDE
     Indication: Product administration error
     Route: 048
     Dates: start: 20250404, end: 20250404
  5. LOXAPINE SUCCINATE [Interacting]
     Active Substance: LOXAPINE SUCCINATE
     Indication: Product administration error
     Route: 048
     Dates: start: 20250404, end: 20250404
  6. LOXAPINE SUCCINATE [Interacting]
     Active Substance: LOXAPINE SUCCINATE
     Dosage: 25 MG, DAILY
     Route: 048
  7. SERTRALINE HYDROCHLORIDE [Suspect]
     Active Substance: SERTRALINE HYDROCHLORIDE
     Indication: Product used for unknown indication
     Dosage: 50 MG, DAILY
     Route: 048
  8. FOLIC ACID [Concomitant]
     Active Substance: FOLIC ACID
     Indication: Product administration error
     Route: 048
     Dates: start: 20250404, end: 20250404
  9. LANSOPRAZOLE [Concomitant]
     Active Substance: LANSOPRAZOLE
     Indication: Product used for unknown indication
     Dosage: 15 MG, DAILY
     Route: 048
  10. LEVOTHYROXINE [Concomitant]
     Active Substance: LEVOTHYROXINE
     Indication: Product used for unknown indication
     Dosage: 175 UG, DAILY
     Route: 048
  11. ORACILLINE [PHENOXYMETHYLPENICILLIN BENZATHIN [Concomitant]
     Indication: Product used for unknown indication
     Route: 048

REACTIONS (2)
  - Drug interaction [Recovered/Resolved]
  - Somnolence [Recovered/Resolved]

NARRATIVE: CASE EVENT DATE: 20250404
